FAERS Safety Report 8010551-9 (Version None)
Quarter: 2011Q4

REPORT INFORMATION
  Report Type: 
  Country: None (occurrence: None)
  Receive Date: 20111228
  Receipt Date: 20111222
  Transmission Date: 20120403
  Serious: Yes (Other)
  Sender: FDA-Public Use
  Company Number: PHHO2011DE021518

PATIENT
  Age: 72 Year
  Sex: Female

DRUGS (1)
  1. ZOLEDRONIC [Suspect]
     Indication: BREAST CANCER
     Dosage: 4 MG, Q3MO
     Dates: start: 20080101, end: 20110401

REACTIONS (1)
  - TOOTH LOSS [None]
